FAERS Safety Report 4628512-6 (Version None)
Quarter: 2005Q2

REPORT INFORMATION
  Report Type: 
  Country: None (occurrence: None)
  Receive Date: 20050404
  Receipt Date: 20050329
  Transmission Date: 20051028
  Serious: Yes (Other)
  Sender: FDA-Public Use
  Company Number: GBWYE915020JUL04

PATIENT
  Age: 61 Year
  Sex: Female

DRUGS (8)
  1. RAPAMUNE [Suspect]
     Indication: IMMUNOSUPPRESSION
     Dosage: ORAL
     Route: 048
  2. AMLODIPINE [Concomitant]
  3. CELLCEPT [Concomitant]
  4. RAMIPRIL [Concomitant]
  5. ISONIAZID [Concomitant]
  6. PYRIDOXINE (PYRIDOXINE) [Concomitant]
  7. SEPTRA [Concomitant]
  8. LANSOPRAZOLE [Concomitant]

REACTIONS (2)
  - ANGIONEUROTIC OEDEMA [None]
  - RASH [None]
